FAERS Safety Report 8268858-6 (Version None)
Quarter: 2012Q2

REPORT INFORMATION
  Report Type: 
  Country: None (occurrence: None)
  Receive Date: 20120409
  Receipt Date: 20120409
  Transmission Date: 20120825
  Serious: Yes (Other)
  Sender: FDA-Public Use
  Company Number: None

PATIENT
  Age: 56 Year
  Sex: Male
  Weight: 120.2 kg

DRUGS (1)
  1. ALLERTEC [Suspect]
     Indication: MULTIPLE ALLERGIES
     Dosage: 10MG
     Route: 048

REACTIONS (1)
  - DRUG INEFFECTIVE [None]
